FAERS Safety Report 24051863 (Version 4)
Quarter: 2024Q3

REPORT INFORMATION
  Report Type: Spontaneous
  Country: US (occurrence: None)
  Receive Date: 20240704
  Receipt Date: 20240916
  Transmission Date: 20241016
  Serious: No
  Sender: ASTRAZENECA
  Company Number: 2024A153772

PATIENT
  Sex: Male

DRUGS (1)
  1. BREZTRI [Suspect]
     Active Substance: BUDESONIDE\FORMOTEROL\GLYCOPYRROLATE
     Route: 055

REACTIONS (11)
  - Taste disorder [Unknown]
  - Oral candidiasis [Unknown]
  - Pharyngeal swelling [Unknown]
  - Condition aggravated [Not Recovered/Not Resolved]
  - Intentional device misuse [Unknown]
  - Wrong technique in product usage process [Unknown]
  - Wrong technique in device usage process [Unknown]
  - Incorrect dose administered by device [Unknown]
  - Overdose [Unknown]
  - Underdose [Unknown]
  - Product packaging quantity issue [Unknown]
